FAERS Safety Report 22059919 (Version 1)
Quarter: 2023Q1

REPORT INFORMATION
  Report Type: Report from Study
  Country: CO (occurrence: CO)
  Receive Date: 20230303
  Receipt Date: 20230303
  Transmission Date: 20230418
  Serious: Yes (Other)
  Sender: FDA-Public Use
  Company Number: CO-UCBSA-2023010514

PATIENT
  Age: 12 Year
  Sex: Female

DRUGS (1)
  1. LACOSAMIDE [Suspect]
     Active Substance: LACOSAMIDE
     Indication: Epilepsy
     Dosage: UNK, ML, 2X/DAY (BID)
     Route: 048
     Dates: start: 20230206, end: 20230224

REACTIONS (1)
  - Intentional self-injury [Recovered/Resolved]

NARRATIVE: CASE EVENT DATE: 20230206
